FAERS Safety Report 8812149 (Version 1)
Quarter: 2012Q4

REPORT INFORMATION
  Report Type: 
  Country: US (occurrence: US)
  Receive Date: 20120927
  Receipt Date: 20120927
  Transmission Date: 20130627
  Serious: Yes (Other)
  Sender: FDA-Public Use
  Company Number: US-ROCHE-1128227

PATIENT
  Sex: Female

DRUGS (4)
  1. AVASTIN [Suspect]
     Indication: BREAST CANCER FEMALE
     Route: 065
  2. HERCEPTIN [Suspect]
     Indication: PRODUCT USED FOR UNKNOWN INDICATION
     Route: 065
  3. NAVELBINE [Concomitant]
  4. ABRAXANE [Concomitant]

REACTIONS (6)
  - Tumour marker increased [Unknown]
  - Pleural effusion [Unknown]
  - Dyspnoea [Unknown]
  - Disease progression [Unknown]
  - Performance status decreased [Unknown]
  - Metastases to bone [Unknown]
